FAERS Safety Report 7576546-4 (Version None)
Quarter: 2011Q2

REPORT INFORMATION
  Report Type: 
  Country: None (occurrence: None)
  Receive Date: 20110628
  Receipt Date: 20110513
  Transmission Date: 20111010
  Serious: Yes (Hospitalization, Other)
  Sender: FDA-Public Use
  Company Number: US-BAYER-2011-012657

PATIENT
  Age: 24 Year
  Sex: Female
  Weight: 86.168 kg

DRUGS (12)
  1. NEXIUM [Concomitant]
     Dosage: UNK
     Dates: start: 20081215, end: 20110130
  2. VIMPAT [Concomitant]
     Dosage: UNK
     Dates: start: 20100429, end: 20101023
  3. ZONEGRAN [Concomitant]
     Dosage: 400 MG, UNK
  4. NORTRIPTYLINE HCL [Concomitant]
     Dosage: UNK
     Dates: start: 20091207, end: 20110202
  5. LORAZEPAM [Concomitant]
     Dosage: UNK
     Dates: start: 20100109, end: 20110216
  6. ASACOL [Concomitant]
     Dosage: UNK
     Dates: start: 20071231, end: 20110130
  7. DROSPIRENONE AND ETHINYL ESTRADIOL [Suspect]
     Dosage: UNK
     Route: 048
     Dates: start: 20070924, end: 20100718
  8. TEGRETOL [Concomitant]
     Dosage: UNK
     Dates: start: 20100716
  9. ZONISAMIDE [Concomitant]
     Dosage: UNK
     Dates: start: 20100110, end: 20100804
  10. OXYCODONE HCL [Concomitant]
     Dosage: UNK
     Dates: start: 20100716
  11. YASMIN [Suspect]
     Dosage: UNK
     Route: 048
     Dates: start: 20070924, end: 20100718
  12. AMOXICILLIN [Concomitant]
     Dosage: UNK
     Dates: start: 20100606

REACTIONS (4)
  - CONVULSION [None]
  - CHEST PAIN [None]
  - PULMONARY EMBOLISM [None]
  - PAIN [None]
